FAERS Safety Report 5474481-9 (Version None)
Quarter: 2007Q4

REPORT INFORMATION
  Report Type: 
  Country: None (occurrence: None)
  Receive Date: 20071002
  Receipt Date: 20070918
  Transmission Date: 20080405
  Serious: Yes (Other)
  Sender: FDA-Public Use
  Company Number: US-ELI_LILLY_AND_COMPANY-US200709003750

PATIENT
  Age: 57 Year
  Sex: Female
  Weight: 54.421 kg

DRUGS (3)
  1. FORTEO [Suspect]
     Indication: OSTEOPOROSIS
     Dosage: UNK, DAILY (1/D)
     Dates: start: 20050701, end: 20061001
  2. MEVACOR [Concomitant]
     Indication: BLOOD CHOLESTEROL INCREASED
  3. ZOCOR [Concomitant]
     Indication: BLOOD CHOLESTEROL

REACTIONS (5)
  - ENCHONDROMATOSIS [None]
  - INFLUENZA [None]
  - VIRAL INFECTION [None]
  - VOMITING [None]
  - WEIGHT INCREASED [None]
